FAERS Safety Report 5119155-9 (Version None)
Quarter: 2006Q3

REPORT INFORMATION
  Report Type: 
  Country: None (occurrence: None)
  Receive Date: 20060929
  Receipt Date: 20060929
  Transmission Date: 20061208
  Serious: Yes (Other)
  Sender: FDA-Public Use
  Company Number: None

PATIENT
  Age: 27 Year
  Sex: Female
  Weight: 63.5036 kg

DRUGS (2)
  1. WELLBUTRIN XL [Suspect]
     Dosage: 150 MG BID PO
     Route: 048
  2. ADDERALL 10 [Suspect]
     Dosage: 30 MG SID PO
     Route: 048

REACTIONS (6)
  - CONTUSION [None]
  - DELUSION [None]
  - FACE INJURY [None]
  - HALLUCINATION [None]
  - LACERATION [None]
  - LOOSE TOOTH [None]
